FAERS Safety Report 15741595 (Version 4)
Quarter: 2019Q2

REPORT INFORMATION
  Report Type: Spontaneous
  Country: US (occurrence: US)
  Receive Date: 20181219
  Receipt Date: 20190513
  Transmission Date: 20190711
  Serious: Yes (Other)
  Sender: FDA-Public Use
  Company Number: US-SA-2018SA343911

PATIENT
  Age: 40 Year
  Sex: Female
  Weight: 65 kg

DRUGS (8)
  1. TAMOXIFEN [Concomitant]
     Active Substance: TAMOXIFEN
  2. RESTORIL [Concomitant]
     Active Substance: TEMAZEPAM
  3. NEOSAR [Concomitant]
     Active Substance: CYCLOPHOSPHAMIDE
     Dosage: UNK
     Route: 065
  4. TAXOTERE [Suspect]
     Active Substance: DOCETAXEL
     Indication: BREAST CANCER FEMALE
     Dosage: UNK UNK, Q3W
     Route: 042
     Dates: start: 20030601, end: 20030601
  5. TAXOTERE [Suspect]
     Active Substance: DOCETAXEL
     Dosage: UNK UNK, Q3W
     Route: 042
     Dates: start: 20040815, end: 20040815
  6. ADRIAMYCIN [Concomitant]
     Active Substance: DOXORUBICIN HYDROCHLORIDE
     Dosage: UNK
     Route: 065
  7. XANAX [Concomitant]
     Active Substance: ALPRAZOLAM
  8. PAXIL [PIROXICAM] [Concomitant]
     Active Substance: PIROXICAM

REACTIONS (2)
  - Alopecia [Recovering/Resolving]
  - Psychological trauma [Unknown]

NARRATIVE: CASE EVENT DATE: 20050216
